FAERS Safety Report 10142070 (Version 2)
Quarter: 2014Q2

REPORT INFORMATION
  Report Type: Report from Study
  Country: DE (occurrence: DE)
  Receive Date: 20140429
  Receipt Date: 20140429
  Transmission Date: 20141212
  Serious: Yes (Other)
  Sender: FDA-Public Use
  Company Number: PHHY2011DE75443

PATIENT
  Age: 83 Year
  Sex: Female
  Weight: 66 kg

DRUGS (5)
  1. ICL670A [Suspect]
     Indication: IRON OVERLOAD
     Dosage: 1500 MG, PER DAY
     Dates: start: 20090120, end: 20090226
  2. ICL670A [Suspect]
     Dosage: 2000 MG, PER DAY
     Dates: start: 20090227, end: 20110309
  3. ICL670A [Suspect]
     Dosage: 1000 MG, QD
     Route: 048
     Dates: start: 20110803, end: 20120306
  4. ICL670A [Suspect]
     Dosage: 1500 MG, PER DAY
     Dates: start: 20120307
  5. CEFUROXIM [Concomitant]
     Indication: URINARY TRACT INFECTION
     Dates: start: 201102

REACTIONS (4)
  - Blood creatinine increased [Recovered/Resolved]
  - Creatinine renal clearance decreased [Recovered/Resolved]
  - Blood iron increased [Unknown]
  - Serum ferritin increased [Unknown]
